FAERS Safety Report 9644497 (Version 2)
Quarter: 2013Q4

REPORT INFORMATION
  Report Type: Spontaneous
  Country: BR (occurrence: BR)
  Receive Date: 20131025
  Receipt Date: 20131025
  Transmission Date: 20140711
  Serious: Yes (Death, Hospitalization, Other)
  Sender: FDA-Public Use
  Company Number: BR-ACCORD-020037

PATIENT
  Age: 30 Year
  Sex: Male

DRUGS (2)
  1. GEMCITABINE [Suspect]
     Indication: GERM CELL CANCER
     Dosage: FIFTH-LINE TREATMENT, ON DAYS 1, 8, AND 15 OF A 28-?DAY CYCLE
  2. PACLITAXEL [Concomitant]
     Indication: GERM CELL CANCER
     Dosage: DAY 1

REACTIONS (4)
  - Brain death [Fatal]
  - Thrombotic microangiopathy [Unknown]
  - Off label use [Unknown]
  - Cerebral haematoma [Unknown]
